FAERS Safety Report 12156388 (Version 1)
Quarter: 2016Q1

REPORT INFORMATION
  Report Type: Spontaneous
  Country: JP (occurrence: JP)
  Receive Date: 20160307
  Receipt Date: 20160307
  Transmission Date: 20160526
  Serious: Yes (Other)
  Sender: FDA-Public Use
  Company Number: PHJP2016JP004287

PATIENT
  Age: 74 Year
  Sex: Female

DRUGS (5)
  1. VOLTAREN SUP [Suspect]
     Active Substance: DICLOFENAC SODIUM
     Indication: LUMBAR SPINAL STENOSIS
     Dosage: 100 MG, QD
     Route: 054
     Dates: start: 20151128, end: 20151129
  2. ROPION [Suspect]
     Active Substance: FLURBIPROFEN AXETIL
     Indication: LUMBAR SPINAL STENOSIS
     Dosage: 10 ML, QD
     Route: 042
     Dates: start: 20151128, end: 20151129
  3. VOLTAREN SUP [Suspect]
     Active Substance: DICLOFENAC SODIUM
     Indication: PAIN
  4. ROPION [Suspect]
     Active Substance: FLURBIPROFEN AXETIL
     Indication: PAIN
  5. NEOPHAGEN [Concomitant]
     Active Substance: GLYCYRRHIZIN
     Indication: HEPATIC FUNCTION ABNORMAL
     Dosage: 20 ML, QD
     Route: 042
     Dates: start: 20151128, end: 20151130

REACTIONS (3)
  - Acute kidney injury [Recovering/Resolving]
  - Urine output increased [Recovered/Resolved]
  - Drug ineffective [Unknown]

NARRATIVE: CASE EVENT DATE: 20151130
